FAERS Safety Report 19451034 (Version 1)
Quarter: 2021Q2

REPORT INFORMATION
  Report Type: Spontaneous
  Country: US (occurrence: US)
  Receive Date: 20210623
  Receipt Date: 20210623
  Transmission Date: 20210717
  Serious: No
  Sender: FDA-Public Use
  Company Number: US-TERSERA THERAPEUTICS LLC-2020TRS001664

PATIENT

DRUGS (3)
  1. ZOLADEX [Suspect]
     Active Substance: GOSERELIN ACETATE
     Indication: BREAST CANCER RECURRENT
     Dosage: 10.8 MG, Q3 MONTHS
     Route: 065
  2. ZOLADEX [Suspect]
     Active Substance: GOSERELIN ACETATE
     Dosage: 10.8 MG, Q3 MONTHS
     Route: 065
  3. ZOLADEX [Suspect]
     Active Substance: GOSERELIN ACETATE
     Dosage: 10.8 MG, Q3 MONTHS
     Route: 065
     Dates: start: 2015

REACTIONS (4)
  - Blood follicle stimulating hormone decreased [Not Recovered/Not Resolved]
  - Bone disorder [Unknown]
  - Off label use [Unknown]
  - Blood luteinising hormone decreased [Not Recovered/Not Resolved]
